FAERS Safety Report 19387201 (Version 1)
Quarter: 2021Q2

REPORT INFORMATION
  Report Type: Spontaneous
  Country: FR (occurrence: FR)
  Receive Date: 20210608
  Receipt Date: 20210608
  Transmission Date: 20210717
  Serious: Yes (Hospitalization, Other)
  Sender: FDA-Public Use
  Company Number: FR-BEH-2021132387

PATIENT
  Sex: Male
  Weight: 3.55 kg

DRUGS (2)
  1. BERINERT [Suspect]
     Active Substance: HUMAN C1-ESTERASE INHIBITOR
     Indication: PRODUCT USED FOR UNKNOWN INDICATION
     Route: 064
  2. BERINERT [Suspect]
     Active Substance: HUMAN C1-ESTERASE INHIBITOR
     Indication: PRODUCT USED FOR UNKNOWN INDICATION
     Route: 064

REACTIONS (4)
  - Foetal exposure during pregnancy [Unknown]
  - Foetal exposure during pregnancy [Recovered/Resolved]
  - Regurgitation [Unknown]
  - Cyanosis [Recovered/Resolved]

NARRATIVE: CASE EVENT DATE: 20210506
